FAERS Safety Report 23463556 (Version 2)
Quarter: 2024Q2

REPORT INFORMATION
  Report Type: Report from Study
  Country: US (occurrence: US)
  Receive Date: 20240131
  Receipt Date: 20240402
  Transmission Date: 20240716
  Serious: Yes (Other)
  Sender: FDA-Public Use
  Company Number: US-ABBVIE-5608260

PATIENT
  Sex: Female

DRUGS (3)
  1. RINVOQ [Suspect]
     Active Substance: UPADACITINIB
     Indication: Rheumatoid arthritis
     Route: 048
  2. RINVOQ [Suspect]
     Active Substance: UPADACITINIB
     Indication: Rheumatoid arthritis
     Route: 048
  3. IBUPROFEN [Suspect]
     Active Substance: IBUPROFEN
     Indication: Pain
     Route: 065

REACTIONS (8)
  - Hip arthroplasty [Unknown]
  - Knee arthroplasty [Unknown]
  - Nervous system disorder [Unknown]
  - Therapeutic product effect delayed [Unknown]
  - Hypoaesthesia [Unknown]
  - Rheumatoid arthritis [Recovered/Resolved]
  - Abdominal discomfort [Unknown]
  - Spinal operation [Unknown]
